FAERS Safety Report 18236006 (Version 1)
Quarter: 2020Q3

REPORT INFORMATION
  Report Type: Spontaneous
  Country: FR (occurrence: FR)
  Receive Date: 20200905
  Receipt Date: 20200905
  Transmission Date: 20201103
  Serious: Yes (Hospitalization)
  Sender: FDA-Public Use
  Company Number: FR-CANTON LABORATORIES, LLC-2089436

PATIENT
  Age: 67 Year
  Sex: Female

DRUGS (17)
  1. DAFALGAN [Concomitant]
     Active Substance: ACETAMINOPHEN
     Route: 048
     Dates: end: 20200711
  2. LYRICA [Concomitant]
     Active Substance: PREGABALIN
     Route: 048
  3. RAMIPRIL. [Suspect]
     Active Substance: RAMIPRIL
     Route: 048
     Dates: end: 20200709
  4. LERCANIDIPINE [Concomitant]
     Active Substance: LERCANIDIPINE
     Route: 048
  5. METFORMINE [Concomitant]
     Active Substance: METFORMIN HYDROCHLORIDE
     Route: 048
     Dates: end: 20200709
  6. NAPROSYN [Suspect]
     Active Substance: NAPROXEN
     Indication: BACK PAIN
     Route: 048
     Dates: start: 20200625, end: 20200705
  7. NOVORAPID [Concomitant]
     Active Substance: INSULIN ASPART
     Route: 058
     Dates: end: 20200709
  8. NEBIVOLOL. [Concomitant]
     Active Substance: NEBIVOLOL
     Route: 048
     Dates: end: 20200709
  9. ALDACTONE [Suspect]
     Active Substance: SPIRONOLACTONE
     Route: 048
     Dates: end: 20200709
  10. LASILIX [Suspect]
     Active Substance: FUROSEMIDE
     Route: 048
     Dates: end: 20200709
  11. ADENURIC [Concomitant]
     Active Substance: FEBUXOSTAT
     Route: 048
  12. ATORVASTATINE [Concomitant]
     Active Substance: ATORVASTATIN
     Route: 048
  13. LEVOTHYROX [Concomitant]
     Active Substance: LEVOTHYROXINE
     Route: 048
  14. KARDEGIC [Concomitant]
     Active Substance: ASPIRIN DL-LYSINE
     Route: 048
  15. IXPRIM [Concomitant]
     Active Substance: ACETAMINOPHEN\TRAMADOL HYDROCHLORIDE
     Route: 048
     Dates: end: 20200709
  16. ESOMEPRAZOLE SODIUM. [Concomitant]
     Active Substance: ESOMEPRAZOLE SODIUM
     Route: 048
     Dates: end: 20200709
  17. ABASAGLAR [Concomitant]
     Active Substance: INSULIN GLARGINE
     Route: 058

REACTIONS (4)
  - Hyperkalaemia [Recovered/Resolved]
  - Acute kidney injury [Recovering/Resolving]
  - Electrocardiogram abnormal [Recovered/Resolved]
  - Drug interaction [Recovered/Resolved]

NARRATIVE: CASE EVENT DATE: 20200625
